FAERS Safety Report 5721558-6 (Version None)
Quarter: 2008Q2

REPORT INFORMATION
  Report Type: 
  Country: None (occurrence: None)
  Receive Date: 20080429
  Receipt Date: 20070320
  Transmission Date: 20081010
  Serious: No
  Sender: FDA-Public Use
  Company Number: US-ASTRAZENECA-2007UW05434

PATIENT
  Age: 35 Year
  Sex: Female
  Weight: 68 kg

DRUGS (4)
  1. NEXIUM [Suspect]
     Indication: GASTROOESOPHAGEAL REFLUX DISEASE
     Route: 048
     Dates: start: 20020101
  2. SENSIPAR [Interacting]
  3. MAGABIND [Concomitant]
  4. RENAVIT [Concomitant]

REACTIONS (3)
  - BLOOD CALCIUM DECREASED [None]
  - DRUG EFFECT DECREASED [None]
  - DRUG INTERACTION [None]
